FAERS Safety Report 6687701-X (Version None)
Quarter: 2010Q2

REPORT INFORMATION
  Report Type: 
  Country: None (occurrence: None)
  Receive Date: 20100420
  Receipt Date: 20100414
  Transmission Date: 20101027
  Serious: Yes (Other)
  Sender: FDA-Public Use
  Company Number: US-RB-007298-10

PATIENT
  Age: 47 Year
  Sex: Male

DRUGS (1)
  1. MUCINEX DM [Suspect]
     Dosage: TOOK 3 DOSES OVER 3 DAYS
     Route: 048
     Dates: start: 20100401

REACTIONS (1)
  - HALLUCINATION, TACTILE [None]
